FAERS Safety Report 18628131 (Version 3)
Quarter: 2020Q4

REPORT INFORMATION
  Report Type: Report from Study
  Country: US (occurrence: US)
  Receive Date: 20201217
  Receipt Date: 20201228
  Transmission Date: 20210114
  Serious: Yes (Life-Threatening, Hospitalization)
  Sender: FDA-Public Use
  Company Number: US-GLAXOSMITHKLINE-US2020GSK243672

PATIENT
  Age: 61 Year
  Sex: Male
  Weight: 74 kg

DRUGS (19)
  1. NIRAPARIB [Suspect]
     Active Substance: NIRAPARIB
     Indication: GLIOBLASTOMA
     Dosage: 300 MG, QD
     Route: 048
     Dates: start: 20201116, end: 20201201
  2. LORAZEPAM. [Concomitant]
     Active Substance: LORAZEPAM
     Dosage: 0.5 MG, Z ONE TABLET PRIOR TO MRI. CAN REPEAT WITH A SECOND TABLET 30 MINUTES LATER IF NEEDED
     Dates: start: 20201203
  3. DEXAMETHASONE. [Concomitant]
     Active Substance: DEXAMETHASONE
     Dosage: 4 MG, BID
     Route: 048
     Dates: start: 20201125
  4. ACETAMINOPHEN. [Concomitant]
     Active Substance: ACETAMINOPHEN
     Indication: ARTHRALGIA
     Dosage: 325 MG, Z EVERY 4 HOURS AS NEEDED
     Route: 048
     Dates: start: 20201020
  5. OXCARBAZEPINE. [Concomitant]
     Active Substance: OXCARBAZEPINE
     Dosage: 300 MG, BID
     Route: 048
     Dates: start: 202003
  6. PANTOPRAZOLE ENTERIC COATED [Concomitant]
     Dosage: 40 MG, QD
     Route: 048
     Dates: start: 20201030
  7. DOCUSATE SODIUM. [Concomitant]
     Active Substance: DOCUSATE SODIUM
     Indication: CONSTIPATION
     Dosage: 100 MG, PRN
     Route: 048
     Dates: start: 20201126
  8. DEXAMETHASONE. [Concomitant]
     Active Substance: DEXAMETHASONE
     Dosage: 2 MG, Z EVERY 6 HOURS
     Route: 048
     Dates: start: 20201020, end: 20201023
  9. LEVETIRACETAM. [Concomitant]
     Active Substance: LEVETIRACETAM
     Indication: SEIZURE
     Dosage: 500 MG, BID
     Route: 048
     Dates: start: 201909
  10. LISINOPRIL. [Concomitant]
     Active Substance: LISINOPRIL
     Dosage: 20 MG, QD
     Route: 048
     Dates: start: 202005, end: 20201020
  11. CLOBAZAM. [Concomitant]
     Active Substance: CLOBAZAM
     Indication: SEIZURE
     Dosage: 10 MG, QD
     Route: 048
     Dates: start: 202004
  12. DEXAMETHASONE. [Concomitant]
     Active Substance: DEXAMETHASONE
     Dosage: 2 MG, Z EVERY 12 HOURS
     Dates: start: 20201024, end: 20201027
  13. DEXAMETHASONE. [Concomitant]
     Active Substance: DEXAMETHASONE
     Dosage: 2 MG, BID
     Route: 048
     Dates: start: 20201028, end: 20201029
  14. DIVALPROEX [Concomitant]
     Active Substance: DIVALPROEX SODIUM
     Indication: SEIZURE
     Dosage: 500 MG, QD (TAKES 500 MG IN THE AM AND 1000 MG IN THE PM)
     Route: 048
     Dates: start: 202004
  15. LEVETIRACETAM. [Concomitant]
     Active Substance: LEVETIRACETAM
     Dosage: 1500 MG, BID
     Route: 048
     Dates: start: 202003
  16. SENNA [Concomitant]
     Active Substance: SENNA LEAF\SENNOSIDES\SENNOSIDES A AND B
     Dosage: 8.6 MG, Z EVERY 12 HOURS
     Route: 048
  17. DAPSONE. [Concomitant]
     Active Substance: DAPSONE
     Indication: PROPHYLAXIS
     Dosage: 100 MG, QD
     Route: 048
     Dates: start: 20200306
  18. DEXAMETHASONE. [Concomitant]
     Active Substance: DEXAMETHASONE
     Indication: SURGERY
     Dosage: 2 MG, BID
     Route: 048
     Dates: start: 20201116
  19. POLYETHYLENE GLYCOL [Concomitant]
     Active Substance: POLYETHYLENE GLYCOLS
     Indication: CONSTIPATION
     Dosage: 17 G, QD AS NEEDED

REACTIONS (2)
  - Fall [Unknown]
  - Thrombocytopenia [Recovered/Resolved]

NARRATIVE: CASE EVENT DATE: 20201207
